FAERS Safety Report 11941926 (Version 1)
Quarter: 2016Q1

REPORT INFORMATION
  Report Type: Spontaneous
  Country: CI (occurrence: CI)
  Receive Date: 20160124
  Receipt Date: 20160124
  Transmission Date: 20160526
  Serious: Yes (Death, Life-Threatening)
  Sender: FDA-Public Use
  Company Number: CI-ROXANE LABORATORIES, INC.-2016-RO-00078RO

PATIENT
  Age: 13 Year
  Sex: Male

DRUGS (1)
  1. PREDNISONE TABLETS USP, 5MG [Suspect]
     Active Substance: PREDNISONE
     Indication: CHRONIC EOSINOPHILIC RHINOSINUSITIS
     Route: 048

REACTIONS (2)
  - Multiple organ dysfunction syndrome [Fatal]
  - Mucormycosis [Unknown]
